FAERS Safety Report 25218231 (Version 1)
Quarter: 2025Q2

REPORT INFORMATION
  Report Type: Spontaneous
  Country: US (occurrence: US)
  Receive Date: 20250421
  Receipt Date: 20250421
  Transmission Date: 20250716
  Serious: No
  Sender: ACCORD
  Company Number: US-Accord-465292

PATIENT
  Sex: Female

DRUGS (8)
  1. DOCETAXEL [Suspect]
     Active Substance: DOCETAXEL
     Indication: Spindle cell sarcoma
     Dates: start: 20220603, end: 20221028
  2. GEMCITABINE [Suspect]
     Active Substance: GEMCITABINE
     Indication: Spindle cell sarcoma
     Dates: start: 20220603, end: 20221028
  3. TEMOZOLOMIDE [Suspect]
     Active Substance: TEMOZOLOMIDE
     Indication: Spindle cell sarcoma
     Dates: start: 20220603, end: 20221028
  4. PAZOPANIB [Suspect]
     Active Substance: PAZOPANIB
     Indication: Spindle cell sarcoma
     Dates: start: 20220603, end: 20221028
  5. DOCETAXEL [Suspect]
     Active Substance: DOCETAXEL
     Indication: Spindle cell sarcoma
     Dates: start: 20221125
  6. GEMCITABINE [Suspect]
     Active Substance: GEMCITABINE
     Indication: Spindle cell sarcoma
     Dates: start: 20221125
  7. PAZOPANIB [Suspect]
     Active Substance: PAZOPANIB
     Indication: Spindle cell sarcoma
     Dates: start: 20221125
  8. TEMOZOLOMIDE [Suspect]
     Active Substance: TEMOZOLOMIDE
     Indication: Spindle cell sarcoma
     Dates: start: 20221125

REACTIONS (2)
  - Lacrimal structure injury [Not Recovered/Not Resolved]
  - Off label use [Unknown]
